FAERS Safety Report 6109112-8 (Version None)
Quarter: 2009Q1

REPORT INFORMATION
  Report Type: 
  Country: None (occurrence: None)
  Receive Date: 20090310
  Receipt Date: 20090303
  Transmission Date: 20090719
  Serious: Yes (Life-Threatening, Other)
  Sender: FDA-Public Use
  Company Number: TR-BAYER-200915248GPV

PATIENT
  Age: 52 Year
  Sex: Female
  Weight: 64 kg

DRUGS (2)
  1. AVELOX [Suspect]
     Indication: UPPER RESPIRATORY TRACT INFECTION
     Route: 048
     Dates: start: 20090225, end: 20090226
  2. NIDILAT [Concomitant]
     Indication: HYPERTENSION
     Route: 060

REACTIONS (5)
  - ASTHENIA [None]
  - HYPERTENSION [None]
  - NAUSEA [None]
  - PALPITATIONS [None]
  - VERTIGO [None]
